FAERS Safety Report 12957941 (Version 1)
Quarter: 2016Q4

REPORT INFORMATION
  Report Type: Spontaneous
  Country: US (occurrence: US)
  Receive Date: 20161118
  Receipt Date: 20161118
  Transmission Date: 20170207
  Serious: No
  Sender: FDA-Public Use
  Company Number: US-AQUA PHARMACEUTICALS-2016AQU000037

PATIENT
  Age: 84 Year
  Sex: Female
  Weight: 56.69 kg

DRUGS (6)
  1. VITAMIN D                          /00107901/ [Concomitant]
     Active Substance: ERGOCALCIFEROL
  2. DOXEPIN [Concomitant]
     Active Substance: DOXEPIN
  3. VALSARTAN. [Concomitant]
     Active Substance: VALSARTAN
  4. VERDESO [Suspect]
     Active Substance: DESONIDE
     Dosage: UNK, BID THREE 2-WEEK INTERVALS
     Route: 061
     Dates: start: 201601
  5. AMLODIPINE [Concomitant]
     Active Substance: AMLODIPINE BESYLATE
  6. GABAPENTIN. [Concomitant]
     Active Substance: GABAPENTIN

REACTIONS (6)
  - Product physical issue [Unknown]
  - Eczema [Not Recovered/Not Resolved]
  - Dry eye [Not Recovered/Not Resolved]
  - Product container issue [Unknown]
  - Drug ineffective [Unknown]
  - Expired product administered [Unknown]

NARRATIVE: CASE EVENT DATE: 2016
